FAERS Safety Report 4684551-0 (Version None)
Quarter: 2005Q2

REPORT INFORMATION
  Report Type: 
  Country: None (occurrence: None)
  Receive Date: 20050603
  Receipt Date: 20050524
  Transmission Date: 20051028
  Serious: Yes (Hospitalization, Other)
  Sender: FDA-Public Use
  Company Number: 26698

PATIENT
  Age: 77 Year
  Sex: Male

DRUGS (6)
  1. ALDARA [Suspect]
     Indication: MALIGNANT MELANOMA IN SITU
     Dosage: (0.1 SACHET, 1 IN 1 DAY(S)), TOPICAL
     Route: 061
     Dates: start: 20050401
  2. PLAVIX [Concomitant]
  3. PROTONIX [Concomitant]
  4. TOPICAL DOVONEX [Concomitant]
  5. ASPIRIN [Concomitant]
  6. MUTLIVITAMINS [Concomitant]

REACTIONS (8)
  - ABDOMINAL PAIN [None]
  - ANXIETY [None]
  - CEREBRAL INFARCTION [None]
  - DYSARTHRIA [None]
  - DYSPHAGIA [None]
  - GASTROINTESTINAL DISORDER [None]
  - GASTROOESOPHAGEAL REFLUX DISEASE [None]
  - LACUNAR INFARCTION [None]
